FAERS Safety Report 4288755-0 (Version None)
Quarter: 2004Q1

REPORT INFORMATION
  Report Type: 
  Country: None (occurrence: None)
  Receive Date: 20040205
  Receipt Date: 20040122
  Transmission Date: 20041129
  Serious: Yes (Other)
  Sender: FDA-Public Use
  Company Number: 2004-UK-00062UK(0)

PATIENT
  Age: 76 Year
  Sex: Female

DRUGS (8)
  1. MICARDIS [Suspect]
     Indication: HYPERTENSION
     Dosage: 1 ANZ, PO/ 1-3 YEARS
     Route: 048
     Dates: start: 20020122, end: 20030501
  2. GLYCERYL TRINITRATE (GLYCERYL TRINITRATE) (NR) [Concomitant]
  3. PRAVSTATIN (PRAVASTATIN) (NR) [Concomitant]
  4. LODOXAMIDE TROMETHAMINE (LODOXAMIDE TROMETHAMINE) (NR) [Concomitant]
  5. ATENOLOL (ATENOLOL) (NR) [Concomitant]
  6. ASPIRIN (ACETYLSALICYCLIC ACID) (NR) [Concomitant]
  7. FRUSEMIDE (FUROSEMIDE) (NR) [Concomitant]
  8. MOXONIDINE (MOXONIDINE) (NR) [Concomitant]

REACTIONS (1)
  - ANAEMIA MACROCYTIC [None]
